FAERS Safety Report 15333890 (Version 2)
Quarter: 2018Q3

REPORT INFORMATION
  Report Type: Report from Study
  Country: US (occurrence: US)
  Receive Date: 20180830
  Receipt Date: 20180903
  Transmission Date: 20181010
  Serious: Yes (Hospitalization)
  Sender: FDA-Public Use
  Company Number: US-BRISTOL-MYERS SQUIBB COMPANY-BMS-2018-079555

PATIENT
  Age: 87 Year
  Sex: Male

DRUGS (1)
  1. NIVOLUMAB [Suspect]
     Active Substance: NIVOLUMAB
     Indication: CHOLANGIOCARCINOMA
     Dosage: 480 MG, Q3WK
     Route: 041
     Dates: start: 20170206

REACTIONS (3)
  - Aneurysm [Unknown]
  - Urinary tract infection [Unknown]
  - Hypotension [Unknown]

NARRATIVE: CASE EVENT DATE: 20180820
